FAERS Safety Report 4659597-9 (Version None)
Quarter: 2005Q2

REPORT INFORMATION
  Report Type: 
  Country: None (occurrence: None)
  Receive Date: 20050510
  Receipt Date: 20050427
  Transmission Date: 20051028
  Serious: Yes (Hospitalization)
  Sender: FDA-Public Use
  Company Number: 2005067008

PATIENT
  Age: 44 Year
  Sex: Male

DRUGS (2)
  1. CLINDA PHOSPHATE [Suspect]
     Indication: ILL-DEFINED DISORDER
     Dates: start: 20050411, end: 20050418
  2. ANALGESICS (ANALGESICS) [Concomitant]

REACTIONS (3)
  - ASTHENIA [None]
  - RHABDOMYOLYSIS [None]
  - TACHYCARDIA [None]
